FAERS Safety Report 8512140-6 (Version None)
Quarter: 2012Q3

REPORT INFORMATION
  Report Type: 
  Country: None (occurrence: None)
  Receive Date: 20120716
  Receipt Date: 20120702
  Transmission Date: 20120928
  Serious: No
  Sender: FDA-Public Use
  Company Number: US-ASTRAZENECA-2012SE40970

PATIENT
  Age: 58 Year
  Sex: Female

DRUGS (2)
  1. SYMBICORT [Suspect]
     Dosage: UNKNOWN FREQUENCY
     Route: 055
  2. SEROQUEL [Suspect]
     Route: 048

REACTIONS (6)
  - PAIN [None]
  - ARTHROPATHY [None]
  - DRUG DOSE OMISSION [None]
  - MALAISE [None]
  - BACK DISORDER [None]
  - INSOMNIA [None]
